FAERS Safety Report 7038418-3 (Version None)
Quarter: 2010Q4

REPORT INFORMATION
  Report Type: 
  Country: None (occurrence: None)
  Receive Date: 20101011
  Receipt Date: 20100507
  Transmission Date: 20110411
  Serious: Yes (Death)
  Sender: FDA-Public Use
  Company Number: US-PFIZER INC-2010058372

PATIENT
  Age: 61 Year
  Sex: Male

DRUGS (4)
  1. NEURONTIN [Suspect]
     Indication: TRIGEMINAL NEURALGIA
  2. GABAPENTIN [Suspect]
     Indication: TRIGEMINAL NEURALGIA
     Dosage: UNK
     Route: 048
  3. ZONISAMIDE [Suspect]
     Indication: TRIGEMINAL NEURALGIA
     Dosage: UNK
  4. TOPAMAX [Suspect]
     Indication: TRIGEMINAL NEURALGIA
     Dosage: UNK

REACTIONS (1)
  - COMPLETED SUICIDE [None]
